FAERS Safety Report 18147690 (Version 3)
Quarter: 2020Q4

REPORT INFORMATION
  Report Type: Spontaneous
  Country: JP (occurrence: JP)
  Receive Date: 20200813
  Receipt Date: 20201027
  Transmission Date: 20210113
  Serious: Yes (Hospitalization)
  Sender: FDA-Public Use
  Company Number: JP-FERRINGPH-2020FE05245

PATIENT
  Age: 77 Year
  Sex: Male

DRUGS (7)
  1. AMITIZA [Concomitant]
     Active Substance: LUBIPROSTONE
     Route: 065
  2. THYRADIN [Concomitant]
     Active Substance: LEVOTHYROXINE
     Route: 065
  3. CORTRIL [Concomitant]
     Active Substance: HYDROCORTISONE
     Route: 065
  4. DECADRON [Concomitant]
     Active Substance: DEXAMETHASONE
     Route: 065
  5. MINIRINMELT [Suspect]
     Active Substance: DESMOPRESSIN ACETATE
     Indication: DIABETES INSIPIDUS
     Dosage: 60 UG, 3 TIMES DAILY
     Route: 048
  6. EXCELASE [Concomitant]
     Active Substance: PANCRELIPASE
     Dosage: UNK UNK, 3 TIMES DAILY
     Route: 065
  7. LANSOPRAZOLE. [Concomitant]
     Active Substance: LANSOPRAZOLE
     Route: 065

REACTIONS (10)
  - Cerebral haemorrhage [Unknown]
  - Oxygen saturation decreased [Recovered/Resolved]
  - Nausea [Recovered/Resolved]
  - Blood pressure immeasurable [Recovered/Resolved]
  - Trismus [Recovered/Resolved]
  - Breath sounds abnormal [Unknown]
  - Dyspnoea [Recovered/Resolved]
  - Decreased appetite [Unknown]
  - Depressed level of consciousness [Recovering/Resolving]
  - Pyrexia [Recovered/Resolved]

NARRATIVE: CASE EVENT DATE: 20200728
